FAERS Safety Report 7492104-4 (Version None)
Quarter: 2011Q2

REPORT INFORMATION
  Report Type: 
  Country: None (occurrence: None)
  Receive Date: 20110519
  Receipt Date: 20110518
  Transmission Date: 20111010
  Serious: Yes (Life-Threatening, Hospitalization, Other)
  Sender: FDA-Public Use
  Company Number: US-CEPHALON-2011001379

PATIENT
  Sex: Female
  Weight: 59 kg

DRUGS (2)
  1. TREANDA [Suspect]
     Indication: MANTLE CELL LYMPHOMA
     Route: 042
     Dates: start: 20081216, end: 20090331
  2. RITUXAN [Concomitant]

REACTIONS (2)
  - JC VIRUS INFECTION [None]
  - ENCEPHALOPATHY [None]
